FAERS Safety Report 7905518-2 (Version None)
Quarter: 2011Q4

REPORT INFORMATION
  Report Type: 
  Country: None (occurrence: None)
  Receive Date: 20111110
  Receipt Date: 20111102
  Transmission Date: 20120403
  Serious: No
  Sender: FDA-Public Use
  Company Number: US-BIOGENIDEC-2011BI028539

PATIENT
  Age: 56 Year
  Sex: Female

DRUGS (1)
  1. TYSABRI [Suspect]
     Indication: MULTIPLE SCLEROSIS
     Route: 042
     Dates: start: 20110715, end: 20110909

REACTIONS (7)
  - DEPRESSED MOOD [None]
  - BACK PAIN [None]
  - FALL [None]
  - ARTHRALGIA [None]
  - PAIN IN EXTREMITY [None]
  - TEMPERATURE INTOLERANCE [None]
  - FATIGUE [None]
